FAERS Safety Report 7830219-9 (Version None)
Quarter: 2011Q4

REPORT INFORMATION
  Report Type: 
  Country: None (occurrence: None)
  Receive Date: 20111021
  Receipt Date: 20111017
  Transmission Date: 20120403
  Serious: Yes (Other)
  Sender: FDA-Public Use
  Company Number: PHHY2011US68786

PATIENT
  Sex: Male

DRUGS (3)
  1. FANAPT [Suspect]
     Route: 048
  2. PROZAC [Concomitant]
     Route: 048
  3. TRILEPTAL [Suspect]

REACTIONS (2)
  - OXYGEN SATURATION DECREASED [None]
  - CARDIOMEGALY [None]
